FAERS Safety Report 5705768-X (Version None)
Quarter: 2008Q2

REPORT INFORMATION
  Report Type: 
  Country: None (occurrence: None)
  Receive Date: 20080415
  Receipt Date: 20080407
  Transmission Date: 20081010
  Serious: Yes (Hospitalization)
  Sender: FDA-Public Use
  Company Number: CH-ASTRAZENECA-2008PK00754

PATIENT
  Age: 27 Year
  Sex: Male

DRUGS (2)
  1. SEROQUEL [Suspect]
     Indication: SCHIZOPHRENIFORM DISORDER
     Route: 048
     Dates: start: 20061001, end: 20061101
  2. SEROQUEL [Suspect]
     Route: 048
     Dates: start: 20061101, end: 20080201

REACTIONS (2)
  - BLOOD COUNT ABNORMAL [None]
  - ELECTROCARDIOGRAM ABNORMAL [None]
